FAERS Safety Report 6243743-X (Version None)
Quarter: 2009Q2

REPORT INFORMATION
  Report Type: 
  Country: None (occurrence: None)
  Receive Date: 20090618
  Receipt Date: 20090317
  Transmission Date: 20091009
  Serious: Yes (Hospitalization)
  Sender: FDA-Public Use
  Company Number: CIP07000592

PATIENT
  Age: 52 Year
  Sex: Female

DRUGS (22)
  1. ACTONEL WITH CALCIUM (COPACKAGED) [Suspect]
     Indication: OSTEOPOROSIS
     Dosage: ORAL
     Route: 048
     Dates: start: 20051122, end: 20060401
  2. CORTICOSTEROID NOS (CORTICOSTEROID NOS) [Suspect]
     Indication: ASTHMA
  3. PREDNISONE TAB [Suspect]
     Indication: ASTHMA
     Dosage: 20 MG DAILY, ORAL
     Route: 048
  4. FLONASE [Suspect]
     Indication: ASTHMA
     Dosage: 2 SPRAYS TWICE DAILY, NASAL
     Route: 045
  5. FLOVENT [Suspect]
     Indication: ASTHMA
     Dosage: 20 UG TWICE DAILY, NASAL
     Route: 045
  6. DIOVAN [Concomitant]
  7. ACCOLATE [Concomitant]
  8. SPIRIVA [Concomitant]
  9. RANITIDINE [Concomitant]
  10. AROMASIN [Concomitant]
  11. FORADIL [Concomitant]
  12. PROZAC [Concomitant]
  13. THEOPHYLLINE [Concomitant]
  14. PROVIGIL [Concomitant]
  15. ZYFLO [Concomitant]
  16. ALBUTEROL /00139501/ (SALBUTAMOL) [Concomitant]
  17. MAXAIR [Concomitant]
  18. ZANTAC [Concomitant]
  19. CARAFATE [Concomitant]
  20. FIBERCON /00567701 (POLYCARBOPHIL) [Concomitant]
  21. CALCIUM (CALCIUM) [Concomitant]
  22. VITAMINS NOS (VITAMINS NOS) [Concomitant]

REACTIONS (12)
  - DENTAL CARIES [None]
  - DYSKINESIA [None]
  - HYPERACUSIS [None]
  - OEDEMA MOUTH [None]
  - OSTEITIS [None]
  - OSTEONECROSIS [None]
  - PAIN IN JAW [None]
  - PHOTOPHOBIA [None]
  - SWELLING FACE [None]
  - TOOTH ABSCESS [None]
  - TOOTH ANKYLOSIS [None]
  - TOOTHACHE [None]
